FAERS Safety Report 23624571 (Version 3)
Quarter: 2024Q3

REPORT INFORMATION
  Report Type: Spontaneous
  Country: US (occurrence: US)
  Receive Date: 20240313
  Receipt Date: 20240718
  Transmission Date: 20241016
  Serious: No
  Sender: SANOFI AVENTIS
  Company Number: US-SA-SAC20240311000341

PATIENT
  Age: 49 Year
  Sex: Male
  Weight: 74.83 kg

DRUGS (1)
  1. DUPIXENT [Suspect]
     Active Substance: DUPILUMAB
     Indication: Asthma
     Dosage: 300 MG, QOW
     Route: 058

REACTIONS (5)
  - Sinusitis [Unknown]
  - Cough [Unknown]
  - Speech disorder [Unknown]
  - Asthma [Unknown]
  - Drug ineffective [Unknown]
